FAERS Safety Report 5660329-6 (Version None)
Quarter: 2008Q1

REPORT INFORMATION
  Report Type: 
  Country: None (occurrence: None)
  Receive Date: 20080311
  Receipt Date: 20070927
  Transmission Date: 20080703
  Serious: No
  Sender: FDA-Public Use
  Company Number: US-BAYER-200713140BCC

PATIENT
  Age: 75 Year
  Sex: Female
  Weight: 82 kg

DRUGS (5)
  1. ALEVE [Suspect]
     Indication: ARTHRALGIA
     Dosage: UNIT DOSE: 220 MG
     Route: 048
     Dates: start: 20070927
  2. LITHIUM CARBONATE [Concomitant]
  3. URECHOLINE [Concomitant]
  4. LASIX [Concomitant]
  5. LEVOXYL [Concomitant]

REACTIONS (1)
  - ABDOMINAL PAIN [None]
